FAERS Safety Report 13336196 (Version 5)
Quarter: 2017Q2

REPORT INFORMATION
  Report Type: Report from Study
  Country: US (occurrence: US)
  Receive Date: 20170314
  Receipt Date: 20170518
  Transmission Date: 20170830
  Serious: Yes (Other)
  Sender: FDA-Public Use
  Company Number: US-GILEAD-2017-0262230

PATIENT
  Age: 80 Year
  Sex: Male

DRUGS (4)
  1. IDELALISIB [Suspect]
     Active Substance: IDELALISIB
     Indication: PANCYTOPENIA
  2. JADENU [Concomitant]
     Active Substance: DEFERASIROX
  3. IDELALISIB [Suspect]
     Active Substance: IDELALISIB
     Indication: HAEMOCHROMATOSIS
  4. IDELALISIB [Suspect]
     Active Substance: IDELALISIB
     Indication: CHRONIC LYMPHOCYTIC LEUKAEMIA RECURRENT
     Dosage: 100 MG, BID
     Route: 048
     Dates: start: 20170214

REACTIONS (13)
  - Glossodynia [Not Recovered/Not Resolved]
  - Serum ferritin abnormal [Unknown]
  - Gait disturbance [Not Recovered/Not Resolved]
  - Deafness [Unknown]
  - Dry mouth [Not Recovered/Not Resolved]
  - Lung disorder [Not Recovered/Not Resolved]
  - Transfusion [Unknown]
  - Muscle tightness [Unknown]
  - Gastrointestinal pain [Unknown]
  - Malaise [Unknown]
  - Limb discomfort [Not Recovered/Not Resolved]
  - Neuropathy peripheral [Not Recovered/Not Resolved]
  - Pain in extremity [Not Recovered/Not Resolved]
